FAERS Safety Report 14170556 (Version 1)
Quarter: 2017Q4

REPORT INFORMATION
  Report Type: Spontaneous
  Country: FR (occurrence: FR)
  Receive Date: 20171108
  Receipt Date: 20171108
  Transmission Date: 20180321
  Serious: Yes (Hospitalization)
  Sender: FDA-Public Use
  Company Number: FR-BRISTOL-MYERS SQUIBB COMPANY-BMS-2017-097264

PATIENT
  Age: 43 Year
  Sex: Female

DRUGS (3)
  1. ENVARSUS XR [Concomitant]
     Active Substance: TACROLIMUS
     Indication: TRANSPLANT REJECTION
     Dosage: UNK
     Route: 065
     Dates: end: 20171018
  2. NULOJIX [Suspect]
     Active Substance: BELATACEPT
     Indication: PRODUCT USED FOR UNKNOWN INDICATION
     Dosage: 250 MG, UNK
     Route: 042
     Dates: start: 20171018
  3. NULOJIX [Suspect]
     Active Substance: BELATACEPT
     Indication: TRANSPLANT REJECTION
     Dosage: 1 DF, QMO
     Route: 065
     Dates: start: 201312, end: 20170802

REACTIONS (7)
  - Face oedema [Recovered/Resolved]
  - Abdominal pain [Recovered/Resolved]
  - Urticaria [Recovered/Resolved]
  - Oedema peripheral [Recovered/Resolved]
  - Tachycardia [Recovered/Resolved]
  - Tinnitus [Unknown]
  - Headache [Recovered/Resolved]

NARRATIVE: CASE EVENT DATE: 20171018
